FAERS Safety Report 10184995 (Version 2)
Quarter: 2014Q3

REPORT INFORMATION
  Report Type: Spontaneous
  Country: IT (occurrence: None)
  Receive Date: 20140519
  Receipt Date: 20140805
  Transmission Date: 20150326
  Serious: Yes (Hospitalization)
  Sender: FDA-Public Use
  Company Number: AUR-APL-2014-05705

PATIENT
  Age: 75 Year
  Sex: Male
  Weight: 70 kg

DRUGS (2)
  1. DIBASE (COLECALCIFEROL) [Concomitant]
  2. CITALOPRAM [Suspect]
     Active Substance: CITALOPRAM HYDROBROMIDE
     Indication: PRODUCT USED FOR UNKNOWN INDICATION
     Dosage: 15 ML, SINGLE, ORAL
     Route: 048
     Dates: start: 20140506, end: 20140506

REACTIONS (5)
  - Electrocardiogram QT prolonged [None]
  - Accidental exposure to product [None]
  - Circumstance or information capable of leading to medication error [None]
  - Headache [None]
  - Wrong drug administered [None]

NARRATIVE: CASE EVENT DATE: 20140506
